FAERS Safety Report 7325162-8 (Version None)
Quarter: 2011Q1

REPORT INFORMATION
  Report Type: 
  Country: None (occurrence: None)
  Receive Date: 20110302
  Receipt Date: 20110225
  Transmission Date: 20110831
  Serious: Yes (Death, Hospitalization)
  Sender: FDA-Public Use
  Company Number: PHHY2010US69831

PATIENT
  Sex: Male
  Weight: 75.283 kg

DRUGS (4)
  1. ANTIBIOTICS [Concomitant]
  2. ZOMETA [Suspect]
     Indication: MULTIPLE MYELOMA
     Dosage: 4 MG EVERY 4 WEEKS
     Route: 042
     Dates: start: 20100929, end: 20100929
  3. TOBRAMYCIN [Concomitant]
  4. VELCADE [Suspect]
     Indication: MULTIPLE MYELOMA
     Dosage: .4 MG WEEKLY FOR THREE WEEKS AND THEN WITH ONE WEEK OFF
     Route: 042
     Dates: start: 20100929

REACTIONS (8)
  - SPINAL COMPRESSION FRACTURE [None]
  - DIARRHOEA [None]
  - URINARY TRACT INFECTION [None]
  - PAIN [None]
  - PYREXIA [None]
  - ANAEMIA [None]
  - RENAL FAILURE [None]
  - NEOPLASM MALIGNANT [None]
